FAERS Safety Report 5871694-9 (Version None)
Quarter: 2008Q3

REPORT INFORMATION
  Report Type: 
  Country: None (occurrence: None)
  Receive Date: 20080904
  Receipt Date: 20080904
  Transmission Date: 20090109
  Serious: No
  Sender: FDA-Public Use
  Company Number: None

PATIENT
  Age: 41 Year
  Sex: Male
  Weight: 105.6881 kg

DRUGS (1)
  1. BYETTA [Suspect]
     Indication: DIABETES MELLITUS
     Dosage: 10MCG BID SQ
     Route: 058
     Dates: start: 20080116, end: 20080903

REACTIONS (5)
  - ABDOMINAL DISTENSION [None]
  - ABDOMINAL PAIN [None]
  - ABDOMINAL PAIN UPPER [None]
  - GASTRIC DISORDER [None]
  - PHARMACEUTICAL PRODUCT COMPLAINT [None]
